FAERS Safety Report 4963460-3 (Version None)
Quarter: 2006Q1

REPORT INFORMATION
  Report Type: 
  Country: None (occurrence: None)
  Receive Date: 20060330
  Receipt Date: 20060320
  Transmission Date: 20060701
  Serious: Yes (Other)
  Sender: FDA-Public Use
  Company Number: 6020720

PATIENT
  Age: 24 Year
  Sex: Female

DRUGS (1)
  1. ISOTRETINOIN [Suspect]
     Indication: ACNE
     Dosage: 20,000 MG (20 MG, 1 IN 1 D), ORAL
     Route: 048
     Dates: start: 20031201, end: 20040201

REACTIONS (7)
  - APPENDICITIS [None]
  - ILEAL ULCER [None]
  - ILEITIS [None]
  - INTESTINAL ISCHAEMIA [None]
  - LEUKOCYTOSIS [None]
  - PERITONITIS [None]
  - VASCULITIS GASTROINTESTINAL [None]
